FAERS Safety Report 4438290-1 (Version None)
Quarter: 2004Q3

REPORT INFORMATION
  Report Type: 
  Country: None (occurrence: None)
  Receive Date: 20040831
  Receipt Date: 20040709
  Transmission Date: 20050211
  Serious: No
  Sender: FDA-Public Use
  Company Number: US-GLAXOSMITHKLINE-A0517683A

PATIENT
  Age: 52 Year
  Sex: Female

DRUGS (2)
  1. WELLBUTRIN XL [Suspect]
     Indication: DEPRESSION
     Dosage: 150MG PER DAY
     Route: 048
  2. TEGRETOL [Concomitant]

REACTIONS (4)
  - ABDOMINAL DISTENSION [None]
  - FAECES DISCOLOURED [None]
  - FLATULENCE [None]
  - STOMACH DISCOMFORT [None]
